FAERS Safety Report 9339557 (Version 1)
Quarter: 2013Q2

REPORT INFORMATION
  Report Type: Spontaneous
  Country: SG (occurrence: SG)
  Receive Date: 20130610
  Receipt Date: 20130610
  Transmission Date: 20140414
  Serious: Yes (Other)
  Sender: FDA-Public Use
  Company Number: SG-NICOBRDEVP-2013-09835

PATIENT
  Age: 64 Year
  Sex: Male

DRUGS (2)
  1. MEROPENEM (UNKNOWN) [Suspect]
     Indication: PSEUDOMONAL BACTERAEMIA
     Dosage: UNKNOWN
     Route: 065
  2. VANCOMYCIN HYDROCHLORIDE (UNKNOWN) [Suspect]
     Indication: PSEUDOMONAL BACTERAEMIA
     Dosage: UNKNOWN
     Route: 065

REACTIONS (4)
  - Klebsiella infection [Recovered/Resolved]
  - Enterococcal infection [Unknown]
  - Pathogen resistance [Unknown]
  - Drug ineffective [Unknown]
